FAERS Safety Report 12500736 (Version 1)
Quarter: 2016Q2

REPORT INFORMATION
  Report Type: Spontaneous
  Country: US (occurrence: US)
  Receive Date: 20160627
  Receipt Date: 20160627
  Transmission Date: 20160815
  Serious: Yes (Other)
  Sender: FDA-Public Use
  Company Number: US-LPDUSPRD-20160547

PATIENT
  Age: 43 Year
  Sex: Female
  Weight: 55 kg

DRUGS (2)
  1. EPINEPHRINE INJECTION, USP (1071-25) [Suspect]
     Active Substance: EPINEPHRINE
     Dosage: 28 ML (1:400,000)
     Route: 051
  2. BUPIVICAINE [Suspect]
     Active Substance: BUPIVACAINE
     Dosage: 28 ML (0.5%)
     Route: 051

REACTIONS (1)
  - Toxicity to various agents [Unknown]
